FAERS Safety Report 14069140 (Version 4)
Quarter: 2020Q2

REPORT INFORMATION
  Report Type: Report from Study
  Country: US (occurrence: US)
  Receive Date: 20171010
  Receipt Date: 20200625
  Transmission Date: 20200713
  Serious: Yes (Hospitalization, Other)
  Sender: FDA-Public Use
  Company Number: US-SA-2017SA195540

PATIENT
  Age: 68 Year
  Sex: Female

DRUGS (1)
  1. IMIGLUCERASE [Suspect]
     Active Substance: IMIGLUCERASE
     Indication: GAUCHER^S DISEASE TYPE I
     Dosage: 2400 IU, Q3W
     Route: 042
     Dates: start: 20040415

REACTIONS (10)
  - Gait disturbance [Unknown]
  - Proteinuria [Not Recovered/Not Resolved]
  - Renal disorder [Recovering/Resolving]
  - Back disorder [Not Recovered/Not Resolved]
  - Spinal fracture [Not Recovered/Not Resolved]
  - Mobility decreased [Unknown]
  - Rib fracture [Unknown]
  - Hospitalisation [Recovering/Resolving]
  - Contusion [Not Recovered/Not Resolved]
  - Road traffic accident [Unknown]

NARRATIVE: CASE EVENT DATE: 201710
